FAERS Safety Report 17236395 (Version 2)
Quarter: 2020Q2

REPORT INFORMATION
  Report Type: Report from Study
  Country: IN (occurrence: IN)
  Receive Date: 20200106
  Receipt Date: 20200521
  Transmission Date: 20200713
  Serious: Yes (Other)
  Sender: FDA-Public Use
  Company Number: IN-ROCHE-2366962

PATIENT
  Age: 43 Year
  Sex: Female

DRUGS (1)
  1. KADCYLA [Suspect]
     Active Substance: ADO-TRASTUZUMAB EMTANSINE
     Indication: BREAST CANCER
     Route: 042
     Dates: start: 20180120

REACTIONS (6)
  - Vomiting [Unknown]
  - Gingival bleeding [Unknown]
  - Cytopenia [Unknown]
  - Constipation [Unknown]
  - Nausea [Unknown]
  - Platelet count decreased [Unknown]
